FAERS Safety Report 4906844-1 (Version None)
Quarter: 2006Q1

REPORT INFORMATION
  Report Type: 
  Country: None (occurrence: None)
  Receive Date: 20060207
  Receipt Date: 20060125
  Transmission Date: 20060701
  Serious: Yes (Hospitalization)
  Sender: FDA-Public Use
  Company Number: 28478

PATIENT
  Age: 63 Year
  Sex: Female

DRUGS (1)
  1. FLECAINIDE ACETATE [Suspect]
     Indication: ATRIAL FIBRILLATION
     Dosage: ORAL
     Route: 048
     Dates: start: 20051001, end: 20051222

REACTIONS (4)
  - HYPOXIA [None]
  - LUNG DISORDER [None]
  - NAUSEA [None]
  - PYREXIA [None]
